FAERS Safety Report 23662706 (Version 1)
Quarter: 2024Q1

REPORT INFORMATION
  Report Type: Spontaneous
  Country: US (occurrence: None)
  Receive Date: 20240321
  Receipt Date: 20240321
  Transmission Date: 20240410
  Serious: Yes (Other)
  Sender: FDA-Public Use
  Company Number: None

PATIENT
  Age: 44 Year
  Sex: Female
  Weight: 74.25 kg

DRUGS (8)
  1. EMEND [Suspect]
     Active Substance: APREPITANT
     Indication: Procedural nausea
     Dosage: OTHER QUANTITY : 1 CAPSULE(S);?OTHER FREQUENCY : ONE TIME;?
     Route: 048
     Dates: start: 20240314, end: 20240314
  2. EMEND [Suspect]
     Active Substance: APREPITANT
     Indication: Procedural vomiting
  3. ETHINYL ESTRADIOL\NORETHINDRONE [Suspect]
     Active Substance: ETHINYL ESTRADIOL\NORETHINDRONE
  4. ENILLORING [Concomitant]
     Active Substance: ETHINYL ESTRADIOL\ETONOGESTREL
  5. LEVOTHYROXINE [Concomitant]
     Active Substance: LEVOTHYROXINE\LEVOTHYROXINE SODIUM
  6. CLARITIN [Concomitant]
     Active Substance: LORATADINE
  7. MAGNESIUM [Concomitant]
     Active Substance: MAGNESIUM
  8. CALCIUM [Concomitant]
     Active Substance: CALCIUM

REACTIONS (8)
  - Drug interaction [None]
  - Drug withdrawal syndrome [None]
  - Myalgia [None]
  - Back pain [None]
  - Headache [None]
  - Crying [None]
  - Vaginal haemorrhage [None]
  - Product packaging issue [None]

NARRATIVE: CASE EVENT DATE: 20240320
